FAERS Safety Report 16772894 (Version 1)
Quarter: 2019Q3

REPORT INFORMATION
  Report Type: Spontaneous
  Country: CA (occurrence: CA)
  Receive Date: 20190904
  Receipt Date: 20190904
  Transmission Date: 20191005
  Serious: Yes (Other)
  Sender: FDA-Public Use
  Company Number: CA-TEVA-2019-CA-1101219

PATIENT
  Age: 36 Year
  Sex: Male

DRUGS (6)
  1. METHYLPREDNISOLONE. [Suspect]
     Active Substance: METHYLPREDNISOLONE
     Indication: THROMBOTIC THROMBOCYTOPENIC PURPURA
     Route: 065
  2. N-ACETYLCYSTEINE [Concomitant]
     Active Substance: ACETYLCYSTEINE
  3. CYCLOPHOSPHAMIDE. [Suspect]
     Active Substance: CYCLOPHOSPHAMIDE
     Indication: THROMBOTIC THROMBOCYTOPENIC PURPURA
     Route: 042
  4. RITUXIMAB. [Suspect]
     Active Substance: RITUXIMAB
     Indication: THROMBOTIC THROMBOCYTOPENIC PURPURA
     Route: 042
  5. CICLOSPORINE [Suspect]
     Active Substance: CYCLOSPORINE
     Indication: THROMBOTIC THROMBOCYTOPENIC PURPURA
     Route: 048
  6. CYCLOPHOSPHAMIDE. [Suspect]
     Active Substance: CYCLOPHOSPHAMIDE
     Route: 042

REACTIONS (6)
  - Clostridium difficile infection [Unknown]
  - Device related infection [Unknown]
  - Vascular device infection [Unknown]
  - Empyema [Unknown]
  - Treatment failure [Unknown]
  - Abdominal abscess [Unknown]
